FAERS Safety Report 6155226-6 (Version None)
Quarter: 2009Q2

REPORT INFORMATION
  Report Type: 
  Country: None (occurrence: None)
  Receive Date: 20090415
  Receipt Date: 20090403
  Transmission Date: 20091009
  Serious: Yes (Hospitalization, Other)
  Sender: FDA-Public Use
  Company Number: AU-PURDUE-USA_2008_0034102

PATIENT
  Age: 41 Year
  Sex: Female

DRUGS (1)
  1. MS CONTIN [Suspect]
     Indication: BACK PAIN
     Route: 042

REACTIONS (3)
  - CHEST PAIN [None]
  - DRUG ABUSE [None]
  - ELECTROCARDIOGRAM CHANGE [None]
